FAERS Safety Report 23357776 (Version 1)
Quarter: 2024Q1

REPORT INFORMATION
  Report Type: Spontaneous
  Country: US (occurrence: None)
  Receive Date: 20240101
  Receipt Date: 20240101
  Transmission Date: 20240410
  Serious: No
  Sender: FDA-Public Use
  Company Number: None

PATIENT
  Age: 5 Year
  Sex: Male

DRUGS (4)
  1. AMOXICILLIN [Suspect]
     Active Substance: AMOXICILLIN
     Dosage: FREQUENCY : TWICE A DAY;?
     Route: 048
  2. lil critters gummy bites [Concomitant]
  3. smurfs kids gummy immune defense [Concomitant]
  4. smarty pants prebiotic/probiotic [Concomitant]

REACTIONS (4)
  - Abnormal behaviour [None]
  - Agitation [None]
  - Psychomotor hyperactivity [None]
  - Irritability [None]

NARRATIVE: CASE EVENT DATE: 20231228
